FAERS Safety Report 6691489-6 (Version None)
Quarter: 2010Q2

REPORT INFORMATION
  Report Type: 
  Country: None (occurrence: None)
  Receive Date: 20100414
  Receipt Date: 20090513
  Transmission Date: 20101027
  Serious: Yes (Other)
  Sender: FDA-Public Use
  Company Number: 09-213

PATIENT
  Sex: Male

DRUGS (2)
  1. ALEVE [Suspect]
     Indication: GOUT
     Dosage: 1320-1760 MG, ONCE ORAL
     Route: 048
     Dates: end: 20090508
  2. ALEVE [Suspect]
     Indication: PAIN
     Dosage: 1320-1760 MG, ONCE ORAL
     Route: 048
     Dates: end: 20090508

REACTIONS (1)
  - HAEMATOCHEZIA [None]
